FAERS Safety Report 8997681 (Version 4)
Quarter: 2014Q2

REPORT INFORMATION
  Report Type: Report from Study
  Country: NO (occurrence: NO)
  Receive Date: 20130104
  Receipt Date: 20140528
  Transmission Date: 20141212
  Serious: Yes (Hospitalization)
  Sender: FDA-Public Use
  Company Number: NO-VERTEX PHARMACEUTICALS INC.-2013-000136

PATIENT
  Age: 27 Year
  Sex: Female
  Weight: 56 kg

DRUGS (12)
  1. VX-950 (TELAPREVIR) [Suspect]
     Indication: HEPATITIS C
     Dosage: UNK, QD
     Route: 048
     Dates: start: 20121016, end: 20121224
  2. COPEGUS [Suspect]
     Indication: HEPATITIS C
     Dosage: 200 MG, 5 TIMES A DAY
     Route: 048
     Dates: start: 20121016, end: 20121224
  3. PEGINTERFERON ALFA 2A [Suspect]
     Indication: HEPATITIS C
     Dosage: 180 ?G, QW
     Route: 058
     Dates: start: 20121016, end: 20121224
  4. CIPRALEX [Concomitant]
     Indication: DEPRESSION
     Dosage: 10 MG, QD
     Route: 048
  5. SOBRIL [Concomitant]
     Indication: INSOMNIA
     Dosage: 10 MG, QD
     Route: 048
     Dates: start: 20120911
  6. PARACETAMOL [Concomitant]
     Indication: PRODUCT USED FOR UNKNOWN INDICATION
     Dosage: 500 MG, PRN
     Route: 048
     Dates: start: 20121018
  7. IBUPROFEN [Concomitant]
     Indication: INFLUENZA LIKE ILLNESS
     Dosage: 200 MG, PRN
     Dates: start: 20121018
  8. LORATADINE [Concomitant]
     Indication: RASH
     Dosage: 10 MG, BID
     Route: 048
     Dates: start: 20121022
  9. HYDROCORTISONE [Concomitant]
     Indication: PRODUCT USED FOR UNKNOWN INDICATION
     Dosage: 1 %, BID
     Route: 061
     Dates: start: 20121113
  10. LOCOID [Concomitant]
     Indication: RASH
     Dosage: 0.1 %, BID
     Route: 061
     Dates: start: 20121022
  11. ZOLPIDEM [Concomitant]
     Indication: INSOMNIA
     Dosage: 10 MG, QD
     Route: 048
     Dates: start: 20121113
  12. ZANTAC [Concomitant]
     Indication: PRODUCT USED FOR UNKNOWN INDICATION
     Dosage: 75 MG, TID
     Route: 065

REACTIONS (1)
  - Pancreatitis [Recovered/Resolved]
